FAERS Safety Report 14529231 (Version 1)
Quarter: 2018Q1

REPORT INFORMATION
  Report Type: Spontaneous
  Country: US (occurrence: US)
  Receive Date: 20180213
  Receipt Date: 20180213
  Transmission Date: 20180509
  Serious: Yes (Hospitalization)
  Sender: FDA-Public Use
  Company Number: None

PATIENT
  Age: 59 Year
  Sex: Male

DRUGS (15)
  1. SOMAVERT [Suspect]
     Active Substance: PEGVISOMANT
     Indication: CARDIAC DISORDER
     Route: 058
     Dates: start: 20170516
  2. SIMVASTATIN. [Concomitant]
     Active Substance: SIMVASTATIN
  3. FUROSEMIDE. [Concomitant]
     Active Substance: FUROSEMIDE
  4. SERTRALINE [Concomitant]
     Active Substance: SERTRALINE HYDROCHLORIDE
  5. CARVEDILOL. [Concomitant]
     Active Substance: CARVEDILOL
  6. LEVOTHYROXIN [Concomitant]
     Active Substance: LEVOTHYROXINE
  7. PREDNISONE. [Concomitant]
     Active Substance: PREDNISONE
  8. DONEPEXIL [Concomitant]
  9. LISINOPRIL. [Concomitant]
     Active Substance: LISINOPRIL
  10. METOPROLOL. [Concomitant]
     Active Substance: METOPROLOL
  11. SPIRONOLACT [Concomitant]
     Active Substance: SPIRONOLACTONE
  12. CONTOUR [Concomitant]
  13. HUMALOG MIX [Concomitant]
     Active Substance: INSULIN LISPRO
  14. ATORVASTATIN [Concomitant]
     Active Substance: ATORVASTATIN
  15. CLOPIDOGREL [Concomitant]
     Active Substance: CLOPIDOGREL BISULFATE

REACTIONS (1)
  - Hospitalisation [None]
